FAERS Safety Report 9111692 (Version 1)
Quarter: 2013Q1

REPORT INFORMATION
  Report Type: Spontaneous
  Country: US (occurrence: US)
  Receive Date: 20130219
  Receipt Date: 20130219
  Transmission Date: 20140127
  Serious: No
  Sender: FDA-Public Use
  Company Number: US-BRISTOL-MYERS SQUIBB COMPANY-16350290

PATIENT
  Age: 66 Year
  Sex: Female

DRUGS (10)
  1. ORENCIA FOR INJ [Suspect]
     Dosage: DOSE MISSED ON LAST FRIDAY (JAN 2012). STARTED BACK ON SUNDAY; DURATION: 3YRS
     Route: 058
  2. LYRICA [Concomitant]
  3. METHYLPREDNISOLONE [Concomitant]
  4. BUPROPION HCL [Concomitant]
  5. HYDROCODONE [Concomitant]
  6. RESTASIS [Concomitant]
     Dosage: 1 DF= 0.5 UNIT NOS
  7. OMEPRAZOLE [Concomitant]
  8. FLUOXETINE [Concomitant]
  9. ALBUTEROL [Concomitant]
  10. SPIRONOLACTONE [Concomitant]

REACTIONS (1)
  - Drug dose omission [Unknown]
